FAERS Safety Report 10790297 (Version 2)
Quarter: 2015Q1

REPORT INFORMATION
  Report Type: Spontaneous
  Country: JP (occurrence: JP)
  Receive Date: 20150212
  Receipt Date: 20150217
  Transmission Date: 20150721
  Serious: Yes (Death)
  Sender: FDA-Public Use
  Company Number: PHJP2015JP001379

PATIENT
  Age: 61 Year
  Sex: Male

DRUGS (1)
  1. AFINITOR [Suspect]
     Active Substance: EVEROLIMUS
     Indication: RENAL CELL CARCINOMA
     Dosage: 10 MG, QD
     Route: 048
     Dates: start: 20110223, end: 201206

REACTIONS (4)
  - Malignant neoplasm progression [Fatal]
  - Decreased appetite [Unknown]
  - C-reactive protein increased [Unknown]
  - Stomatitis [Unknown]
